FAERS Safety Report 15959495 (Version 1)
Quarter: 2019Q1

REPORT INFORMATION
  Report Type: Spontaneous
  Country: FI (occurrence: FI)
  Receive Date: 20190214
  Receipt Date: 20190214
  Transmission Date: 20190417
  Serious: Yes (Other)
  Sender: FDA-Public Use
  Company Number: FI-ACCORD-106168

PATIENT
  Age: 51 Year
  Sex: Female

DRUGS (11)
  1. HERCEPTIN [Suspect]
     Active Substance: TRASTUZUMAB
     Indication: PRODUCT USED FOR UNKNOWN INDICATION
     Dosage: AS MAINTENANCE THERAPY
     Route: 065
  2. DOCETAXEL. [Suspect]
     Active Substance: DOCETAXEL
     Indication: HER-2 POSITIVE BREAST CANCER
     Dosage: AS 1ST LINE TREATMENT, 9 CYCLES
     Route: 065
  3. XGEVA [Concomitant]
     Active Substance: DENOSUMAB
     Indication: HER-2 POSITIVE BREAST CANCER
     Dosage: AS MAINTENANCE THERAPY, 6 TREATMENTS
     Route: 065
  4. HERCEPTIN [Suspect]
     Active Substance: TRASTUZUMAB
     Indication: PRODUCT USED FOR UNKNOWN INDICATION
     Dosage: AS MAINTENANCE THERAPY
     Route: 065
  5. DOCETAXEL. [Suspect]
     Active Substance: DOCETAXEL
     Indication: HER-2 POSITIVE BREAST CANCER
     Dosage: AS 1ST LINE TREATMENT 9 CYCLES, AS MAINTENANCE THERAPY 6 TREATMENTS
     Route: 065
  6. XGEVA [Concomitant]
     Active Substance: DENOSUMAB
     Dosage: AS MAINTENANCE THERAPY, 6 TREATMENTS
     Route: 065
  7. HERCEPTIN [Suspect]
     Active Substance: TRASTUZUMAB
     Indication: PRODUCT USED FOR UNKNOWN INDICATION
     Dosage: AS MAINTENANCE THERAPY, 6 TREATMENTS
     Route: 065
  8. KADCYLA [Suspect]
     Active Substance: ADO-TRASTUZUMAB EMTANSINE
     Indication: HER-2 POSITIVE BREAST CANCER
     Dosage: AS 2ND LINE TREATMENT
     Route: 042
  9. ZOMETA [Concomitant]
     Active Substance: ZOLEDRONIC ACID
     Indication: HER-2 POSITIVE BREAST CANCER
     Dosage: AS MAINTENANCE THERAPY, AS 1ST LINE TREATMENT 9 CYCLES
     Route: 065
  10. HERCEPTIN [Suspect]
     Active Substance: TRASTUZUMAB
     Indication: HER-2 POSITIVE BREAST CANCER
     Dosage: AS 1ST LINE TREATMENT 9 CYCLES, AS MAINTENANCE THERAPY, 6 TREATMENTS
     Route: 065
  11. ZOMETA [Concomitant]
     Active Substance: ZOLEDRONIC ACID
     Dosage: AS MAINTENANCE THERAPY
     Route: 065

REACTIONS (13)
  - Fatigue [Recovered/Resolved]
  - Transaminases increased [Recovering/Resolving]
  - Haemangioma [Unknown]
  - Osteoarthritis [Recovered/Resolved]
  - Erysipelas [Unknown]
  - Headache [Recovered/Resolved]
  - Muscular weakness [Unknown]
  - Neuropathy peripheral [Recovered/Resolved]
  - Epistaxis [Unknown]
  - Septic shock [Unknown]
  - Telangiectasia [Unknown]
  - Muscle spasms [Unknown]
  - Thrombocytopenia [Unknown]

NARRATIVE: CASE EVENT DATE: 2013
